FAERS Safety Report 16153173 (Version 1)
Quarter: 2019Q2

REPORT INFORMATION
  Report Type: Spontaneous
  Country: GB (occurrence: GB)
  Receive Date: 20190403
  Receipt Date: 20190403
  Transmission Date: 20190711
  Serious: Yes (Life-Threatening, Hospitalization, Other)
  Sender: FDA-Public Use
  Company Number: GB-TEVA-2019-GB-1032715

PATIENT
  Age: 23 Year
  Sex: Female

DRUGS (3)
  1. PROPRANOLOL [Suspect]
     Active Substance: PROPRANOLOL HYDROCHLORIDE
     Indication: HEADACHE
     Dosage: 40 MILLIGRAM DAILY;
     Route: 048
     Dates: start: 20190226, end: 20190305
  2. PHENERGAN [Concomitant]
     Active Substance: PROMETHAZINE HYDROCHLORIDE
  3. CETIRIZINE DIHYDROCHLORIDE [Concomitant]
     Active Substance: CETIRIZINE HYDROCHLORIDE

REACTIONS (7)
  - Somnolence [Recovering/Resolving]
  - Suicidal ideation [Recovered/Resolved]
  - Decreased appetite [Recovering/Resolving]
  - Asthenia [Recovering/Resolving]
  - Diarrhoea [Recovered/Resolved with Sequelae]
  - Depression [Recovered/Resolved]
  - Nightmare [Recovered/Resolved with Sequelae]

NARRATIVE: CASE EVENT DATE: 20190226
